FAERS Safety Report 18813591 (Version 1)
Quarter: 2021Q1

REPORT INFORMATION
  Report Type: Report from Study
  Country: None (occurrence: US)
  Receive Date: 20210201
  Receipt Date: 20210201
  Transmission Date: 20210419
  Serious: Yes (Hospitalization)
  Sender: FDA-Public Use
  Company Number: US-ABBVIE-20K-163-3576002-00

PATIENT
  Age: 76 Year
  Sex: Female

DRUGS (2)
  1. DUOPA [Suspect]
     Active Substance: CARBIDOPA\LEVODOPA
  2. DUOPA [Suspect]
     Active Substance: CARBIDOPA\LEVODOPA
     Indication: PRODUCT USED FOR UNKNOWN INDICATION
     Route: 050
     Dates: start: 20190313, end: 20210127

REACTIONS (4)
  - Lower limb fracture [Recovering/Resolving]
  - Fall [Unknown]
  - Drug ineffective [Unknown]
  - Hospitalisation [Unknown]

NARRATIVE: CASE EVENT DATE: 202011
